FAERS Safety Report 5037130-X (Version None)
Quarter: 2006Q2

REPORT INFORMATION
  Report Type: 
  Country: None (occurrence: None)
  Receive Date: 20060622
  Receipt Date: 20060612
  Transmission Date: 20061013
  Serious: Yes (Death, Hospitalization)
  Sender: FDA-Public Use
  Company Number: 2006-DE-03036GD

PATIENT

DRUGS (5)
  1. ACETAMINOPHEN [Suspect]
  2. IBUPROFEN [Suspect]
  3. HYDROCHLOROTHIAZIDE [Suspect]
  4. RIFAMPICIN [Suspect]
     Indication: TUBERCULOSIS
     Dosage: SEE TEXT,
  5. PYRAZINAMIDE [Suspect]
     Indication: TUBERCULOSIS
     Dosage: SEE TEXT,

REACTIONS (2)
  - HEPATIC FAILURE [None]
  - HEPATOTOXICITY [None]
